FAERS Safety Report 8307763-3 (Version None)
Quarter: 2012Q2

REPORT INFORMATION
  Report Type: 
  Country: None (occurrence: None)
  Receive Date: 20120424
  Receipt Date: 20120417
  Transmission Date: 20120825
  Serious: Yes (Other)
  Sender: FDA-Public Use
  Company Number: US-ABBOTT-12P-163-0915936-00

PATIENT
  Sex: Female
  Weight: 56.296 kg

DRUGS (4)
  1. TRAMADOL HCL [Concomitant]
     Indication: RHEUMATOID ARTHRITIS
  2. HUMIRA [Suspect]
     Indication: RHEUMATOID ARTHRITIS
     Dates: start: 20050101, end: 20110701
  3. PLAQUENIL [Concomitant]
     Indication: RHEUMATOID ARTHRITIS
  4. HUMIRA [Suspect]
     Dates: start: 20111001

REACTIONS (6)
  - ABASIA [None]
  - OEDEMA PERIPHERAL [None]
  - HYPERKERATOSIS [None]
  - BUNION [None]
  - IMPAIRED HEALING [None]
  - FOOT DEFORMITY [None]
